FAERS Safety Report 16886725 (Version 2)
Quarter: 2019Q4

REPORT INFORMATION
  Report Type: Spontaneous
  Country: UA (occurrence: UA)
  Receive Date: 20191004
  Receipt Date: 20191120
  Transmission Date: 20200122
  Serious: Yes (Hospitalization)
  Sender: FDA-Public Use
  Company Number: UA-BAUSCH-BL-2019-055396

PATIENT
  Age: 49 Year
  Sex: Female
  Weight: 107 kg

DRUGS (6)
  1. CYTARABINE. [Suspect]
     Active Substance: CYTARABINE
     Indication: PRECURSOR T-LYMPHOBLASTIC LYMPHOMA/LEUKAEMIA
     Dosage: 2 COURSES OF HIGH DOSE-DHAP
     Route: 065
     Dates: start: 20171212, end: 20171215
  2. CISPLATIN. [Suspect]
     Active Substance: CISPLATIN
     Indication: PRECURSOR T-LYMPHOBLASTIC LYMPHOMA/LEUKAEMIA
     Dosage: 2 COURSES OF HIGH DOSE-DHAP
     Route: 065
     Dates: start: 20171212, end: 20171215
  3. CISPLATIN. [Suspect]
     Active Substance: CISPLATIN
     Dosage: RE-INTRODUCED DOSE AFTER 28 DAYS
     Route: 065
     Dates: start: 2018
  4. DEXAMETHASONE. [Suspect]
     Active Substance: DEXAMETHASONE
     Indication: PRECURSOR T-LYMPHOBLASTIC LYMPHOMA/LEUKAEMIA
     Dosage: 2 COURSES OF HIGH DOSE-DHAP
     Route: 065
     Dates: start: 20171212
  5. CYTARABINE. [Suspect]
     Active Substance: CYTARABINE
     Dosage: RE-INTRODUCED DOSE AFTER 28 DAYS
     Route: 065
     Dates: start: 2018
  6. IMATINIB. [Concomitant]
     Active Substance: IMATINIB MESYLATE
     Indication: CHRONIC MYELOID LEUKAEMIA
     Dates: start: 201703

REACTIONS (2)
  - Adverse event [Recovered/Resolved]
  - Blood disorder [Recovered/Resolved]

NARRATIVE: CASE EVENT DATE: 201712
